FAERS Safety Report 13417439 (Version 1)
Quarter: 2017Q2

REPORT INFORMATION
  Report Type: Spontaneous
  Country: US (occurrence: US)
  Receive Date: 20170407
  Receipt Date: 20170407
  Transmission Date: 20170830
  Serious: Yes (Hospitalization)
  Sender: FDA-Public Use
  Company Number: US-MYLANLABS-2017M1021488

PATIENT

DRUGS (1)
  1. CLONIDINE. [Suspect]
     Active Substance: CLONIDINE
     Indication: PRODUCT USED FOR UNKNOWN INDICATION
     Dosage: 3 TABLETS OF UNKNOWN STRENGTH
     Route: 048

REACTIONS (5)
  - Overdose [Unknown]
  - Bradyarrhythmia [Recovered/Resolved]
  - Intentional product misuse [Unknown]
  - Somnolence [Unknown]
  - Atrioventricular block [Unknown]
